FAERS Safety Report 7222243-4 (Version None)
Quarter: 2011Q1

REPORT INFORMATION
  Report Type: 
  Country: None (occurrence: None)
  Receive Date: 20110112
  Receipt Date: 20110106
  Transmission Date: 20110831
  Serious: Yes (Other)
  Sender: FDA-Public Use
  Company Number: US-TEVA-262643USA

PATIENT
  Sex: Female

DRUGS (5)
  1. AMLODIPINE [Concomitant]
  2. HYDROCODONE [Concomitant]
  3. REPAGLINIDE [Concomitant]
  4. METFORMIN [Concomitant]
     Indication: TYPE 2 DIABETES MELLITUS
  5. HYDRALAZINE HCL [Suspect]
     Dates: start: 20101124, end: 20101218

REACTIONS (12)
  - PAIN [None]
  - PYREXIA [None]
  - RENAL INJURY [None]
  - MYOGLOBIN URINE [None]
  - RENAL TUBULAR DISORDER [None]
  - DYSURIA [None]
  - CHROMATURIA [None]
  - MUSCLE INJURY [None]
  - CHILLS [None]
  - RASH [None]
  - RHABDOMYOLYSIS [None]
  - TREMOR [None]
